FAERS Safety Report 7508177-6 (Version None)
Quarter: 2011Q2

REPORT INFORMATION
  Report Type: 
  Country: None (occurrence: None)
  Receive Date: 20110519
  Receipt Date: 20110505
  Transmission Date: 20111010
  Serious: No
  Sender: FDA-Public Use
  Company Number: 201105019

PATIENT
  Age: 82 Year
  Sex: Male
  Weight: 105.2345 kg

DRUGS (5)
  1. VITAMIN D [Concomitant]
  2. FENTANYL PATCH (FENTANYL CITRATE) [Concomitant]
  3. TESTIM [Suspect]
     Indication: BLOOD TESTOSTERONE DECREASED
     Dosage: 1 IN 1 D
     Dates: start: 20110101
  4. CARDIZEM LA [Concomitant]
  5. ALLOPURINOL [Concomitant]

REACTIONS (3)
  - WRONG TECHNIQUE IN DRUG USAGE PROCESS [None]
  - SUNBURN [None]
  - NIPPLE DISORDER [None]
